FAERS Safety Report 19829639 (Version 1)
Quarter: 2021Q3

REPORT INFORMATION
  Report Type: Spontaneous
  Country: JP (occurrence: JP)
  Receive Date: 20210914
  Receipt Date: 20210914
  Transmission Date: 20211014
  Serious: Yes (Hospitalization, Other)
  Sender: FDA-Public Use
  Company Number: JP-SA-2021SA301066

PATIENT
  Age: 51 Year
  Sex: Male

DRUGS (2)
  1. CAPECITABINE. [Concomitant]
     Active Substance: CAPECITABINE
     Route: 065
  2. ELPLAT [Suspect]
     Active Substance: OXALIPLATIN
     Indication: ANAL CANCER
     Dosage: UNK, ONCE IN 3 WEEKS
     Route: 041

REACTIONS (3)
  - Decreased appetite [Unknown]
  - Necrotising oesophagitis [Recovering/Resolving]
  - Blood creatinine increased [Unknown]
